FAERS Safety Report 14363300 (Version 1)
Quarter: 2018Q1

REPORT INFORMATION
  Report Type: Report from Study
  Country: US (occurrence: US)
  Receive Date: 20180108
  Receipt Date: 20180108
  Transmission Date: 20180509
  Serious: Yes (Hospitalization)
  Sender: FDA-Public Use
  Company Number: US-PFIZER INC-2018002355

PATIENT
  Age: 58 Year
  Sex: Female
  Weight: 65.76 kg

DRUGS (6)
  1. REMODULIN [Suspect]
     Active Substance: TREPROSTINIL
     Indication: PULMONARY HYPERTENSION
     Dosage: 0.038 UG/KG, UNK
     Route: 042
     Dates: start: 20140324
  2. AMBRISENTAN [Suspect]
     Active Substance: AMBRISENTAN
     Dosage: 10 MG, 1X/DAY
     Dates: start: 20140324
  3. AMBRISENTAN [Suspect]
     Active Substance: AMBRISENTAN
     Dosage: 10 MG, 1X/DAY
     Dates: start: 20160226
  4. AMBRISENTAN [Suspect]
     Active Substance: AMBRISENTAN
     Dosage: 10 MG, UNK
     Dates: start: 20160314
  5. REMODULIN [Suspect]
     Active Substance: TREPROSTINIL
     Dosage: 0.034 UG/KG, UNK
     Route: 042
  6. REVATIO [Suspect]
     Active Substance: SILDENAFIL CITRATE
     Dosage: UNK

REACTIONS (12)
  - Hypotension [Unknown]
  - Localised infection [Not Recovered/Not Resolved]
  - Dehydration [Unknown]
  - Gallbladder disorder [Not Recovered/Not Resolved]
  - Hepatic enzyme increased [Unknown]
  - Asthenia [Unknown]
  - Oedema peripheral [Unknown]
  - Abdominal pain [Unknown]
  - Procedural pain [Not Recovered/Not Resolved]
  - Fall [Unknown]
  - Malnutrition [Unknown]
  - Gait disturbance [Not Recovered/Not Resolved]

NARRATIVE: CASE EVENT DATE: 201705
